FAERS Safety Report 8445918-8 (Version None)
Quarter: 2012Q2

REPORT INFORMATION
  Report Type: 
  Country: None (occurrence: None)
  Receive Date: 20120618
  Receipt Date: 20120613
  Transmission Date: 20120825
  Serious: Yes (Death, Hospitalization, Other)
  Sender: FDA-Public Use
  Company Number: BR-ABBOTT-12P-020-0929636-00

PATIENT
  Sex: Female
  Weight: 65 kg

DRUGS (5)
  1. METHOTREXATE [Concomitant]
     Indication: PRODUCT USED FOR UNKNOWN INDICATION
     Dosage: ON MONDAYS, TUESDAYS, AND WEDNESDAYS
     Dates: start: 20040101
  2. HUMIRA [Suspect]
     Indication: RHEUMATOID ARTHRITIS
     Dates: start: 20040101, end: 20120423
  3. FOLIC ACID [Concomitant]
     Indication: PROPHYLAXIS
     Dosage: ON THURSDAYS AND FRIDAYS
     Dates: start: 20080101
  4. PREDNISONE [Concomitant]
     Indication: PRODUCT USED FOR UNKNOWN INDICATION
     Dates: start: 20070101
  5. FOLIC ACID [Concomitant]
     Indication: BLOOD IRON DECREASED

REACTIONS (15)
  - BREAST CANCER [None]
  - METASTASES TO LUNG [None]
  - DYSPNOEA [None]
  - HYPOPHAGIA [None]
  - PULMONARY OEDEMA [None]
  - VIRAL INFECTION [None]
  - PYREXIA [None]
  - WEIGHT DECREASED [None]
  - MALAISE [None]
  - OEDEMA PERIPHERAL [None]
  - DECREASED APPETITE [None]
  - INSOMNIA [None]
  - PLEURAL EFFUSION [None]
  - BEDRIDDEN [None]
  - ORAL CANDIDIASIS [None]
